FAERS Safety Report 19515030 (Version 1)
Quarter: 2021Q3

REPORT INFORMATION
  Report Type: Spontaneous
  Country: US (occurrence: US)
  Receive Date: 20210709
  Receipt Date: 20210709
  Transmission Date: 20211014
  Serious: Yes (Hospitalization)
  Sender: FDA-Public Use
  Company Number: US-TEVA-2021-US-1930324

PATIENT
  Age: 62 Year
  Sex: Female
  Weight: 47.6 kg

DRUGS (1)
  1. CYCLOBENZAPRINE. [Suspect]
     Active Substance: CYCLOBENZAPRINE
     Indication: MUSCLE SPASMS
     Route: 065

REACTIONS (2)
  - Hypokinesia [Unknown]
  - Panic attack [Unknown]

NARRATIVE: CASE EVENT DATE: 202103
